FAERS Safety Report 7142147-5 (Version None)
Quarter: 2010Q4

REPORT INFORMATION
  Report Type: 
  Country: None (occurrence: None)
  Receive Date: 20101207
  Receipt Date: 20101130
  Transmission Date: 20110411
  Serious: Yes (Other)
  Sender: FDA-Public Use
  Company Number: US-PFIZER INC-2010131777

PATIENT
  Sex: Female

DRUGS (10)
  1. CELEBREX [Suspect]
     Dosage: UNK
  2. MOBIC [Suspect]
     Dosage: 15, 1 TAB QAM
     Dates: end: 20100914
  3. MULTI-VITAMINS [Concomitant]
     Dosage: 1 TAB
  4. ASCORBIC ACID [Concomitant]
     Dosage: 1000 MG, 1X/DAY
  5. VITAMIN B-12 [Concomitant]
     Dosage: 250 UG, 1X/DAY
  6. CALTRATE PLUS [Concomitant]
     Dosage: 1TAB
  7. FISH OIL [Concomitant]
     Dosage: 1000 MG, 1X/DAY
  8. LOTENSIN [Concomitant]
     Dosage: 20 MG-25 MG 1 TAB(S) QAM
  9. PRILOSEC [Concomitant]
     Dosage: 20 MG, UNK
     Route: 048
     Dates: end: 20100914
  10. ACETYLSALICYLIC ACID [Concomitant]
     Dosage: 81 MG, 1X/DAY
     Route: 048
     Dates: end: 20100914

REACTIONS (3)
  - GASTROINTESTINAL HAEMORRHAGE [None]
  - NAUSEA [None]
  - URINARY TRACT INFECTION [None]
